FAERS Safety Report 9347128 (Version 1)
Quarter: 2013Q2

REPORT INFORMATION
  Report Type: Spontaneous
  Country: US (occurrence: US)
  Receive Date: 20130613
  Receipt Date: 20130613
  Transmission Date: 20140414
  Serious: No
  Sender: FDA-Public Use
  Company Number: US-009507513-1306USA002196

PATIENT
  Sex: 0
  Weight: 62.13 kg

DRUGS (2)
  1. IMPLANON [Suspect]
     Dosage: 1 DF
     Route: 059
     Dates: start: 20120626
  2. IMPLANON [Suspect]
     Dosage: UNK

REACTIONS (2)
  - Device breakage [Unknown]
  - No adverse event [Unknown]
